FAERS Safety Report 22096938 (Version 19)
Quarter: 2025Q1

REPORT INFORMATION
  Report Type: Spontaneous
  Country: US (occurrence: US)
  Receive Date: 20230315
  Receipt Date: 20250310
  Transmission Date: 20250408
  Serious: Yes (Hospitalization, Other)
  Sender: PFIZER
  Company Number: US-PFIZER INC-202200466521

PATIENT
  Age: 84 Year
  Sex: Female
  Weight: 85.714 kg

DRUGS (5)
  1. TIKOSYN [Suspect]
     Active Substance: DOFETILIDE
     Indication: Atrial fibrillation
     Dosage: ONE IN THE MORNING AND ONE AT NIGHT
     Route: 048
     Dates: start: 2022
  2. TIKOSYN [Suspect]
     Active Substance: DOFETILIDE
     Dosage: 0.25 MG, 2X/DAY
  3. TIKOSYN [Suspect]
     Active Substance: DOFETILIDE
     Dosage: 125UG CAPSULES (250 UG TOTAL) 2 TIMES DAILY
     Route: 048
  4. TIKOSYN [Suspect]
     Active Substance: DOFETILIDE
     Dosage: 125 UG (2 CAPSULES, 2X/DAY)
     Route: 048
  5. ELIQUIS [Concomitant]
     Active Substance: APIXABAN

REACTIONS (7)
  - Neuropathy peripheral [Not Recovered/Not Resolved]
  - Impaired driving ability [Not Recovered/Not Resolved]
  - Myocardial infarction [Unknown]
  - Blindness [Not Recovered/Not Resolved]
  - Cataract [Unknown]
  - Mobility decreased [Unknown]
  - Hypertension [Unknown]

NARRATIVE: CASE EVENT DATE: 20240101
